FAERS Safety Report 5085606-1 (Version None)
Quarter: 2006Q3

REPORT INFORMATION
  Report Type: 
  Country: None (occurrence: None)
  Receive Date: 20060822
  Receipt Date: 20060818
  Transmission Date: 20061208
  Serious: Yes (Hospitalization)
  Sender: FDA-Public Use
  Company Number: FR-GLAXOSMITHKLINE-B0434712A

PATIENT
  Age: 52 Year
  Sex: Female

DRUGS (5)
  1. AUGMENTIN [Suspect]
     Indication: PYELONEPHRITIS ACUTE
     Dosage: 1UNIT SINGLE DOSE
     Route: 048
     Dates: start: 20020101, end: 20020101
  2. SINTROM [Concomitant]
     Route: 065
  3. GLUCOR [Concomitant]
     Route: 065
  4. ALDALIX [Concomitant]
     Route: 065
  5. RENITEC [Concomitant]
     Route: 065

REACTIONS (8)
  - ABDOMINAL PAIN [None]
  - ANGIONEUROTIC OEDEMA [None]
  - DIARRHOEA [None]
  - HYPERSENSITIVITY [None]
  - MALAISE [None]
  - PAINFUL RESPIRATION [None]
  - SYNCOPE [None]
  - URTICARIA GENERALISED [None]
